FAERS Safety Report 9413269 (Version 1)
Quarter: 2013Q3

REPORT INFORMATION
  Report Type: Spontaneous
  Country: US (occurrence: None)
  Receive Date: 20130709
  Receipt Date: 20130709
  Transmission Date: 20140515
  Serious: Yes (Hospitalization)
  Sender: FDA-Public Use
  Company Number: 08-AUR-06596

PATIENT
  Sex: Female

DRUGS (4)
  1. DIDANOSINE [Suspect]
     Indication: HIV INFECTION
     Route: 064
  2. RITONAVIR (RITONAVIR) [Suspect]
     Indication: HIV INFECTION
  3. NEVIRAPINE (NEVIRAPINE) [Suspect]
     Indication: HIV INFECTION
  4. LAMIVUDINE [Suspect]
     Indication: HIV INFECTION

REACTIONS (1)
  - Retinoblastoma [None]
